FAERS Safety Report 15085217 (Version 2)
Quarter: 2018Q3

REPORT INFORMATION
  Report Type: Spontaneous
  Country: US (occurrence: US)
  Receive Date: 20180628
  Receipt Date: 20180719
  Transmission Date: 20181010
  Serious: No
  Sender: FDA-Public Use
  Company Number: US-009507513-1806USA011026

PATIENT
  Sex: Female

DRUGS (2)
  1. ASMANEX HFA [Suspect]
     Active Substance: MOMETASONE FUROATE
     Dosage: UNK
     Route: 055
  2. LOSARTAN. [Suspect]
     Active Substance: LOSARTAN
     Indication: HYPERTENSION

REACTIONS (7)
  - No adverse event [Unknown]
  - Dry mouth [Unknown]
  - Arthritis [Unknown]
  - Wrong technique in product usage process [Unknown]
  - Hypertension [Unknown]
  - Product packaging issue [Unknown]
  - Myalgia [Unknown]
